FAERS Safety Report 25619456 (Version 3)
Quarter: 2025Q3

REPORT INFORMATION
  Report Type: Spontaneous
  Country: EU (occurrence: EU)
  Receive Date: 20250729
  Receipt Date: 20250807
  Transmission Date: 20251020
  Serious: Yes (Other)
  Sender: VERITY PHARMACEUTICALS INC.
  Company Number: EU-VER-202500002

PATIENT
  Age: 62 Year
  Sex: Male

DRUGS (6)
  1. TRIPTORELIN PAMOATE [Suspect]
     Active Substance: TRIPTORELIN PAMOATE
     Indication: Prostate cancer
     Route: 065
     Dates: start: 202209, end: 202308
  2. ABIRATERONE/ PREDNISOLONE+ LYNPARZA [Concomitant]
     Indication: Prostate cancer
     Route: 065
     Dates: start: 202505
  3. ABIRATERONE/ PREDNISOLONE [Concomitant]
     Indication: Prostate cancer
     Route: 065
     Dates: start: 202401
  4. EARLY DOCETAXEL [Concomitant]
     Indication: Prostate cancer
     Route: 065
     Dates: start: 202308
  5. ENZALUTAMIDE [Suspect]
     Active Substance: ENZALUTAMIDE
     Indication: Prostate cancer
     Route: 065
     Dates: start: 202209
  6. BICALUTAMIDE [Suspect]
     Active Substance: BICALUTAMIDE
     Indication: Prostate cancer
     Route: 065
     Dates: start: 202209

REACTIONS (1)
  - Prostate cancer [Unknown]

NARRATIVE: CASE EVENT DATE: 20230701
